FAERS Safety Report 25114851 (Version 1)
Quarter: 2025Q1

REPORT INFORMATION
  Report Type: Spontaneous
  Country: US (occurrence: US)
  Receive Date: 20250324
  Receipt Date: 20250324
  Transmission Date: 20250408
  Serious: Yes (Hospitalization)
  Sender: ABBVIE
  Company Number: US-ABBVIE-6186947

PATIENT
  Age: 43 Year
  Sex: Male

DRUGS (2)
  1. DICYCLOMINE HYDROCHLORIDE [Suspect]
     Active Substance: DICYCLOMINE HYDROCHLORIDE
     Indication: Clostridium difficile infection
     Route: 030
  2. KETOROLAC [Suspect]
     Active Substance: KETOROLAC TROMETHAMINE
     Indication: Clostridium difficile infection
     Route: 042

REACTIONS (4)
  - Superficial vein thrombosis [Unknown]
  - Injection site pain [Recovered/Resolved]
  - Product commingling [Unknown]
  - Axillary vein thrombosis [Unknown]
